FAERS Safety Report 5580237-9 (Version None)
Quarter: 2007Q4

REPORT INFORMATION
  Report Type: 
  Country: None (occurrence: None)
  Receive Date: 20071228
  Receipt Date: 20071220
  Transmission Date: 20080405
  Serious: Yes (Hospitalization)
  Sender: FDA-Public Use
  Company Number: GXKR2007DE10800

PATIENT
  Age: 74 Year
  Sex: Male

DRUGS (21)
  1. VERAHEXAL (NGX)(VERAPAMOL) FILM-COATED TABLET [Suspect]
     Dosage: 40-80-80 MG, ORAL
     Route: 048
     Dates: start: 20071121, end: 20071121
  2. VERAHEXAL RETARD (NGX)(VERAPAMIL) UNKNOWN [Suspect]
     Dosage: 120 MG, BID, ORAL
     Route: 048
     Dates: start: 20071022, end: 20071127
  3. AFONILUM (THEOPHYLLINE) [Concomitant]
  4. DIGITOXIN (DIGITOXIN) [Concomitant]
  5. DELIX PLUS (HYDROCHLOROTHIAZIDE, RAMIPRIL) [Concomitant]
  6. SANASTHMAX (BECLOMETHASONE DIPROPIONATE) [Concomitant]
  7. RAMIPRIL [Concomitant]
  8. BERODUAL (FENOTEROL HYDROBROMIDE, IPRATROPIUM BROMIDE) [Concomitant]
  9. MARCUMAR [Concomitant]
  10. DOXAZOSIN MESYLATE [Concomitant]
  11. BETAHISTINE (BETAHISTINE) [Concomitant]
  12. TOREM (TORASEMIDE) [Concomitant]
  13. NOVONORM (REPAGLINIDE) [Concomitant]
  14. KONAKION [Concomitant]
  15. VIANI (FLUTICASONE PROPRIONATE, SALMETORL XINAFOATE) [Concomitant]
  16. SPIRIVA [Concomitant]
  17. DOLANTIN (PETHIDINE HYDROCHLORIDE) [Concomitant]
  18. EMBOLEX [Concomitant]
  19. LANTUS [Concomitant]
  20. SIMVASTATIN [Concomitant]
  21. LEGALON (SILYBUM MARIANUM) [Concomitant]

REACTIONS (1)
  - HEPATITIS [None]
